FAERS Safety Report 11597893 (Version 1)
Quarter: 2015Q4

REPORT INFORMATION
  Report Type: Spontaneous
  Country: US (occurrence: US)
  Receive Date: 20151006
  Receipt Date: 20151006
  Transmission Date: 20160304
  Serious: No
  Sender: FDA-Public Use
  Company Number: US-JNJFOC-20150824502

PATIENT
  Age: 34 Year
  Sex: Female
  Weight: 65.77 kg

DRUGS (9)
  1. METHYLPREDNISOLONE. [Concomitant]
     Active Substance: METHYLPREDNISOLONE
     Indication: SINUSITIS
     Dosage: TITRATED DOSING
     Route: 048
     Dates: start: 201503, end: 201503
  2. CODEINE PHOSPHATE GUAIFENESIN [Concomitant]
     Active Substance: CODEINE PHOSPHATE\GUAIFENESIN
     Indication: PRODUCTIVE COUGH
     Dosage: TITRATED DOSING
     Route: 048
     Dates: start: 201503, end: 201503
  3. CODEINE PHOSPHATE GUAIFENESIN [Concomitant]
     Active Substance: CODEINE PHOSPHATE\GUAIFENESIN
     Indication: PRODUCTIVE COUGH
     Dosage: 10-20MG, ONCE DAILY AT NIGHT.
     Route: 048
     Dates: start: 201503, end: 201503
  4. CODEINE PHOSPHATE GUAIFENESIN [Concomitant]
     Active Substance: CODEINE PHOSPHATE\GUAIFENESIN
     Indication: ANTITUSSIVE THERAPY
     Dosage: TITRATED DOSING
     Route: 048
     Dates: start: 201503, end: 201503
  5. CODEINE PHOSPHATE GUAIFENESIN [Concomitant]
     Active Substance: CODEINE PHOSPHATE\GUAIFENESIN
     Indication: ANTITUSSIVE THERAPY
     Dosage: 10-20MG, ONCE DAILY AT NIGHT.
     Route: 048
     Dates: start: 201503, end: 201503
  6. CODEINE PHOSPHATE GUAIFENESIN [Concomitant]
     Active Substance: CODEINE PHOSPHATE\GUAIFENESIN
     Indication: SINUSITIS
     Dosage: TITRATED DOSING
     Route: 048
     Dates: start: 201503, end: 201503
  7. CODEINE PHOSPHATE GUAIFENESIN [Concomitant]
     Active Substance: CODEINE PHOSPHATE\GUAIFENESIN
     Indication: SINUSITIS
     Dosage: 10-20MG, ONCE DAILY AT NIGHT.
     Route: 048
     Dates: start: 201503, end: 201503
  8. ZITHROMAX [Concomitant]
     Active Substance: AZITHROMYCIN DIHYDRATE
     Route: 065
  9. LEVAQUIN [Suspect]
     Active Substance: LEVOFLOXACIN
     Indication: SINUSITIS
     Route: 048
     Dates: start: 201503, end: 201503

REACTIONS (14)
  - Pain in extremity [Not Recovered/Not Resolved]
  - Decreased activity [Not Recovered/Not Resolved]
  - Joint crepitation [Not Recovered/Not Resolved]
  - Back pain [Not Recovered/Not Resolved]
  - Fatigue [Not Recovered/Not Resolved]
  - Headache [Not Recovered/Not Resolved]
  - Insomnia [Not Recovered/Not Resolved]
  - Confusional state [Not Recovered/Not Resolved]
  - Oedema [Not Recovered/Not Resolved]
  - Tendonitis [Not Recovered/Not Resolved]
  - Tinnitus [Not Recovered/Not Resolved]
  - Palpitations [Not Recovered/Not Resolved]
  - Weight increased [Not Recovered/Not Resolved]
  - Nerve compression [Not Recovered/Not Resolved]

NARRATIVE: CASE EVENT DATE: 201504
